FAERS Safety Report 11798100 (Version 4)
Quarter: 2016Q2

REPORT INFORMATION
  Report Type: Report from Study
  Country: CA (occurrence: CA)
  Receive Date: 20151203
  Receipt Date: 20160523
  Transmission Date: 20160815
  Serious: Yes (Other)
  Sender: FDA-Public Use
  Company Number: CA-JNJFOC-20150917587

PATIENT
  Age: 54 Year
  Sex: Female
  Weight: 58 kg

DRUGS (9)
  1. REMICADE [Suspect]
     Active Substance: INFLIXIMAB
     Indication: CROHN^S DISEASE
     Route: 042
     Dates: start: 20160308
  2. TYLENOL [Concomitant]
     Active Substance: ACETAMINOPHEN
     Dosage: PRN (AS REQUIRED)
     Route: 048
  3. METHOTREXATE [Concomitant]
     Active Substance: METHOTREXATE
     Route: 058
  4. GRAVOL [Concomitant]
     Active Substance: DIMENHYDRINATE
     Indication: PREMEDICATION
     Route: 042
  5. REMICADE [Suspect]
     Active Substance: INFLIXIMAB
     Indication: CROHN^S DISEASE
     Route: 042
     Dates: start: 20150421
  6. FOLIC ACID. [Concomitant]
     Active Substance: FOLIC ACID
     Route: 065
  7. REMICADE [Suspect]
     Active Substance: INFLIXIMAB
     Indication: CROHN^S DISEASE
     Route: 042
     Dates: start: 20150407
  8. REMICADE [Suspect]
     Active Substance: INFLIXIMAB
     Indication: CROHN^S DISEASE
     Route: 042
     Dates: start: 20151103
  9. REMICADE [Suspect]
     Active Substance: INFLIXIMAB
     Indication: CROHN^S DISEASE
     Route: 042
     Dates: start: 20151001

REACTIONS (19)
  - Flushing [Not Recovered/Not Resolved]
  - Pallor [Unknown]
  - Infection [Recovered/Resolved]
  - Cardiac flutter [Recovering/Resolving]
  - Dyspepsia [Unknown]
  - Eye pruritus [Unknown]
  - Malaise [Unknown]
  - Chills [Not Recovered/Not Resolved]
  - Pyrexia [Not Recovered/Not Resolved]
  - Cough [Unknown]
  - Decreased appetite [Unknown]
  - Pollakiuria [Unknown]
  - Product use issue [Unknown]
  - Crohn^s disease [Recovered/Resolved]
  - Animal bite [Recovering/Resolving]
  - Inflammation [Recovering/Resolving]
  - Off label use [Unknown]
  - Back pain [Unknown]
  - Headache [Unknown]

NARRATIVE: CASE EVENT DATE: 2015
